FAERS Safety Report 10210027 (Version 1)
Quarter: 2014Q2

REPORT INFORMATION
  Report Type: Spontaneous
  Country: CN (occurrence: None)
  Receive Date: 20140528
  Receipt Date: 20140528
  Transmission Date: 20141212
  Serious: Yes (Other)
  Sender: FDA-Public Use
  Company Number: 2350262

PATIENT
  Age: 55 Year
  Sex: Female
  Weight: 55 kg

DRUGS (2)
  1. PACLITAXEL [Suspect]
     Indication: ENDOMETRIAL CANCER
     Dosage: 180 MG M 2 MILLIGRAM(S) /SQ. METER (1 WEEK)
     Dates: start: 20130416, end: 20130416
  2. CARBOPLATIN [Concomitant]

REACTIONS (4)
  - Chest discomfort [None]
  - Dyspnoea [None]
  - Flushing [None]
  - Off label use [None]
